FAERS Safety Report 4424433-2 (Version None)
Quarter: 2004Q3

REPORT INFORMATION
  Report Type: 
  Country: None (occurrence: None)
  Receive Date: 20040812
  Receipt Date: 20040802
  Transmission Date: 20050211
  Serious: Yes (Other)
  Sender: FDA-Public Use
  Company Number: JP-JNJFOC-20040601724

PATIENT
  Sex: Male

DRUGS (39)
  1. RISPERDAL [Suspect]
     Route: 049
  2. RISPERDAL [Suspect]
     Route: 049
  3. RISPERDAL [Suspect]
     Route: 049
  4. RISPERDAL [Suspect]
     Route: 049
  5. RISPERDAL [Suspect]
     Route: 049
  6. RISPERDAL [Suspect]
     Route: 049
  7. RISPERDAL [Suspect]
     Route: 049
  8. RISPERDAL [Suspect]
     Route: 049
  9. RISPERDAL [Suspect]
     Route: 049
  10. RISPERDAL [Suspect]
     Route: 049
  11. RISPERDAL [Suspect]
     Route: 049
  12. RISPERDAL [Suspect]
     Indication: SCHIZOPHRENIA
     Route: 049
  13. LEVOMEPROMAZINE MALEATE [Concomitant]
     Route: 049
  14. LEVOMEPROMAZINE MALEATE [Concomitant]
     Route: 049
  15. LEVOMEPROMAZINE MALEATE [Concomitant]
     Route: 049
  16. LEVOMEPROMAZINE MALEATE [Concomitant]
     Route: 049
  17. LEVOMEPROMAZINE MALEATE [Concomitant]
     Route: 049
  18. BIPERIDEN HYDROCHLORIDE [Concomitant]
     Route: 049
  19. BIPERIDEN HYDROCHLORIDE [Concomitant]
     Route: 049
  20. BIPERIDEN HYDROCHLORIDE [Concomitant]
     Route: 049
  21. BIPERIDEN HYDROCHLORIDE [Concomitant]
     Route: 049
  22. BIPERIDEN HYDROCHLORIDE [Concomitant]
     Route: 049
  23. BIPERIDEN HYDROCHLORIDE [Concomitant]
     Route: 049
  24. BIPERIDEN HYDROCHLORIDE [Concomitant]
     Route: 049
  25. BIPERIDEN HYDROCHLORIDE [Concomitant]
     Route: 049
  26. BIPERIDEN HYDROCHLORIDE [Concomitant]
     Route: 049
  27. BIPERIDEN HYDROCHLORIDE [Concomitant]
     Route: 049
  28. BIPERIDEN HYDROCHLORIDE [Concomitant]
     Indication: TREMOR
     Route: 049
  29. CLONAZEPAM [Concomitant]
     Indication: TREMOR
     Route: 049
  30. QUETIAPINE [Concomitant]
  31. QUETIAPINE [Concomitant]
  32. QUETIAPINE [Concomitant]
  33. QUETIAPINE [Concomitant]
  34. QUETIAPINE [Concomitant]
  35. QUETIAPINE [Concomitant]
  36. HALOPERIDOL [Concomitant]
     Route: 030
  37. AMOBARBITAL [Concomitant]
     Route: 049
  38. BROMVALERYLUREA [Concomitant]
     Route: 049
  39. OLANZAPINE [Concomitant]
     Route: 049

REACTIONS (6)
  - ALANINE AMINOTRANSFERASE INCREASED [None]
  - HAEMOGLOBIN DECREASED [None]
  - PLATELET COUNT INCREASED [None]
  - PROTEIN TOTAL DECREASED [None]
  - RED BLOOD CELL COUNT DECREASED [None]
  - TREMOR [None]
